FAERS Safety Report 8256025-1 (Version None)
Quarter: 2012Q2

REPORT INFORMATION
  Report Type: 
  Country: None (occurrence: None)
  Receive Date: 20120403
  Receipt Date: 20120323
  Transmission Date: 20120825
  Serious: Yes (Other)
  Sender: FDA-Public Use
  Company Number: RU-ROCHE-1051853

PATIENT
  Sex: Female

DRUGS (5)
  1. EPOCRIN [Concomitant]
  2. RIBAVIRIN [Suspect]
     Indication: HEPATITIS C
     Route: 048
     Dates: start: 20111115, end: 20120228
  3. FERRUM [Concomitant]
  4. PEGASYS [Suspect]
     Indication: HEPATITIS C
     Route: 058
     Dates: start: 20111115, end: 20120228
  5. METHYLURACIL [Concomitant]

REACTIONS (2)
  - ANAEMIA [None]
  - LEUKOPENIA [None]
